FAERS Safety Report 7636212-3 (Version None)
Quarter: 2011Q3

REPORT INFORMATION
  Report Type: 
  Country: None (occurrence: None)
  Receive Date: 20110726
  Receipt Date: 20110713
  Transmission Date: 20111222
  Serious: Yes (Other)
  Sender: FDA-Public Use
  Company Number: CA-GENENTECH-319491

PATIENT
  Sex: Female

DRUGS (3)
  1. SYMBICORT [Concomitant]
  2. SINGULAIR [Concomitant]
  3. XOLAIR [Suspect]
     Indication: ASTHMA
     Dosage: 375 MG, Q2W
     Route: 058
     Dates: start: 20110503

REACTIONS (4)
  - FATIGUE [None]
  - OSTEOPOROSIS [None]
  - OROPHARYNGEAL PAIN [None]
  - HAEMATOMA [None]
